FAERS Safety Report 17703717 (Version 3)
Quarter: 2020Q2

REPORT INFORMATION
  Report Type: Spontaneous
  Country: AR (occurrence: AR)
  Receive Date: 20200424
  Receipt Date: 20200602
  Transmission Date: 20200714
  Serious: Yes (Other)
  Sender: FDA-Public Use
  Company Number: AR-GLAXOSMITHKLINE-AR2020AMR017882

PATIENT
  Age: 50 Year
  Sex: Male

DRUGS (1)
  1. NUCALA [Suspect]
     Active Substance: MEPOLIZUMAB
     Indication: ASTHMA
     Dosage: UNK
     Dates: start: 20190812

REACTIONS (6)
  - Asthmatic crisis [Unknown]
  - Product preparation error [Unknown]
  - Hypersensitivity [Unknown]
  - Feeling hot [Unknown]
  - Sneezing [Unknown]
  - Dyspnoea [Unknown]

NARRATIVE: CASE EVENT DATE: 202003
